FAERS Safety Report 9321570 (Version 3)
Quarter: 2013Q3

REPORT INFORMATION
  Report Type: Report from Study
  Country: KR (occurrence: KR)
  Receive Date: 20130531
  Receipt Date: 20130702
  Transmission Date: 20140515
  Serious: Yes (Hospitalization)
  Sender: FDA-Public Use
  Company Number: KR-ELI_LILLY_AND_COMPANY-KR201305002900

PATIENT
  Age: 52 Year
  Sex: Male

DRUGS (3)
  1. LISPRO KWIKPEN / MIRIOPEN DISPOSABLE [Suspect]
     Indication: TYPE 2 DIABETES MELLITUS
     Dosage: 4 U, BID
     Dates: start: 201303
  2. LISPRO KWIKPEN / MIRIOPEN DISPOSABLE [Suspect]
     Dosage: 6 IU, TID
     Dates: start: 20130523
  3. LANTUS [Concomitant]
     Dosage: 14 U, EACH MORNING
     Route: 058

REACTIONS (2)
  - Hyperglycaemia [Recovered/Resolved]
  - Hypoglycaemia [Recovered/Resolved]
